FAERS Safety Report 6857364-9 (Version None)
Quarter: 2010Q3

REPORT INFORMATION
  Report Type: 
  Country: None (occurrence: None)
  Receive Date: 20100719
  Receipt Date: 20100707
  Transmission Date: 20110219
  Serious: Yes (Other)
  Sender: FDA-Public Use
  Company Number: BR-PFIZER INC-2010084631

PATIENT
  Age: 63 Year
  Sex: Male

DRUGS (7)
  1. VIAGRA [Suspect]
     Dosage: 50 MG, 1X/DAY, 1 TABLET
     Route: 048
     Dates: start: 20091218, end: 20100707
  2. ATENOLOL [Concomitant]
     Indication: HYPERTENSION
     Dosage: UNK
  3. CAPTOPRIL [Concomitant]
     Indication: HYPERTENSION
     Dosage: UNK
  4. ASPIRIN [Concomitant]
     Dosage: UNK
  5. OMEPRAZOLE [Concomitant]
     Dosage: UNK
  6. CASTANHA DE INDIA [Concomitant]
     Dosage: UNK
  7. GINKGO BILOBA [Concomitant]
     Dosage: UNK

REACTIONS (1)
  - PROSTATIC DISORDER [None]
